FAERS Safety Report 17010128 (Version 1)
Quarter: 2019Q4

REPORT INFORMATION
  Report Type: Spontaneous
  Country: US (occurrence: US)
  Receive Date: 20190930
  Receipt Date: 20190930
  Transmission Date: 20200122
  Serious: Yes (Hospitalization)
  Sender: FDA-Public Use
  Company Number: None

PATIENT
  Age: 69 Year
  Sex: Male

DRUGS (2)
  1. HALOPERIDOL. [Suspect]
     Active Substance: HALOPERIDOL
     Indication: AGGRESSION
  2. HALOPERIDOL. [Suspect]
     Active Substance: HALOPERIDOL
     Indication: AGITATION
     Dates: start: 20190513, end: 20190618

REACTIONS (6)
  - Cognitive disorder [None]
  - Aggression [None]
  - Mental status changes [None]
  - Muscular weakness [None]
  - Somnolence [None]
  - Irritability [None]

NARRATIVE: CASE EVENT DATE: 20190621
